FAERS Safety Report 8110426-0 (Version None)
Quarter: 2012Q1

REPORT INFORMATION
  Report Type: 
  Country: None (occurrence: None)
  Receive Date: 20120202
  Receipt Date: 20120126
  Transmission Date: 20120608
  Serious: Yes (Hospitalization)
  Sender: FDA-Public Use
  Company Number: US-GILEAD-2011-0043026

PATIENT
  Sex: Male

DRUGS (12)
  1. RITALIN [Concomitant]
     Indication: ATTENTION DEFICIT/HYPERACTIVITY DISORDER
     Dates: start: 19900101
  2. DIOVAN [Concomitant]
     Indication: HYPERTENSION
     Dates: start: 20090101
  3. ALBUTEROL [Concomitant]
     Indication: CHRONIC OBSTRUCTIVE PULMONARY DISEASE
     Dates: start: 20080101
  4. GUAIFENESIN [Concomitant]
     Indication: RESPIRATORY TRACT CONGESTION
     Dates: start: 20080101
  5. SILVER CENTRUM [Concomitant]
     Indication: PROPHYLAXIS
     Dates: start: 20080101
  6. SINGULAIR [Concomitant]
  7. SPIRIVA [Concomitant]
     Indication: CHRONIC OBSTRUCTIVE PULMONARY DISEASE
     Dates: start: 20080101
  8. OXYGEN [Concomitant]
     Indication: CHRONIC OBSTRUCTIVE PULMONARY DISEASE
  9. SYMBICORT [Concomitant]
     Indication: CHRONIC OBSTRUCTIVE PULMONARY DISEASE
     Dates: start: 20110201
  10. AZTREONAM [Suspect]
     Indication: BRONCHIECTASIS
     Dosage: 75 MG, TID
     Route: 055
     Dates: start: 20110729, end: 20110816
  11. TEKTURNA [Concomitant]
     Indication: HYPERTENSION
     Dates: start: 20090101
  12. OMNARIS [Concomitant]
     Indication: NASAL CONGESTION
     Dates: start: 20050101

REACTIONS (1)
  - ASTHMA [None]
